FAERS Safety Report 14952228 (Version 2)
Quarter: 2019Q1

REPORT INFORMATION
  Report Type: Spontaneous
  Country: FR (occurrence: FR)
  Receive Date: 20180530
  Receipt Date: 20190227
  Transmission Date: 20190417
  Serious: Yes (Hospitalization)
  Sender: FDA-Public Use
  Company Number: FR-PFIZER INC-2018214101

PATIENT
  Age: 6 Year
  Sex: Male

DRUGS (7)
  1. VINCRISTINE SULFATE. [Suspect]
     Active Substance: VINCRISTINE SULFATE
     Indication: ACUTE LYMPHOCYTIC LEUKAEMIA
     Dosage: 1.5 MG/M2, EVERY 4 WEEKS
     Route: 042
     Dates: start: 20160708, end: 20180402
  2. METHOTREXATE SODIUM. [Suspect]
     Active Substance: METHOTREXATE SODIUM
     Indication: ACUTE LYMPHOCYTIC LEUKAEMIA
     Dosage: 30 MG, MONTHLY
     Route: 048
     Dates: start: 20170529, end: 20180402
  3. PURINETHOL [Suspect]
     Active Substance: MERCAPTOPURINE
     Indication: ACUTE LYMPHOCYTIC LEUKAEMIA
     Dosage: 300 MG, WEEKLY
     Route: 048
     Dates: start: 20170529, end: 20180402
  4. DECTANCYL [Suspect]
     Active Substance: DEXAMETHASONE
     Indication: ACUTE LYMPHOCYTIC LEUKAEMIA
     Dosage: 4.5 MG, PER DAY 5 DAYS IN MONTH
     Route: 048
     Dates: start: 20160713, end: 20180402
  5. GABAPENTIN. [Suspect]
     Active Substance: GABAPENTIN
     Indication: NEURALGIA
     Dosage: 900 MG, 1X/DAY (1D)
     Route: 048
     Dates: start: 20160710, end: 20180404
  6. BACTRIM [Suspect]
     Active Substance: SULFAMETHOXAZOLE\TRIMETHOPRIM
     Indication: PROPHYLAXIS
     Dosage: 6 DF, WEEKLY
     Route: 048
     Dates: start: 20160704
  7. ONDANSETRON ACCORD [Suspect]
     Active Substance: ONDANSETRON
     Indication: PROPHYLAXIS OF NAUSEA AND VOMITING
     Dosage: 4 MG, EVERY 28 DAYS
     Route: 042
     Dates: start: 20160723, end: 20180402

REACTIONS (2)
  - Product use issue [Unknown]
  - Pancreatitis acute [Recovering/Resolving]

NARRATIVE: CASE EVENT DATE: 20180402
